FAERS Safety Report 18062820 (Version 2)
Quarter: 2020Q4

REPORT INFORMATION
  Report Type: Report from Study
  Country: FI (occurrence: FI)
  Receive Date: 20200724
  Receipt Date: 20201028
  Transmission Date: 20210113
  Serious: Yes (Hospitalization, Other)
  Sender: FDA-Public Use
  Company Number: FI-BIOGEN-2020BI00900085

PATIENT
  Age: 59 Year
  Sex: Male

DRUGS (8)
  1. TECFIDERA [Suspect]
     Active Substance: DIMETHYL FUMARATE
     Dosage: MAINTENANCE DOSE?1 IN THE MORNING AND 1 IN THE EVENING
     Route: 048
     Dates: start: 202001
  2. ALVESCO [Concomitant]
     Active Substance: CICLESONIDE
     Indication: ASTHMA
     Route: 065
  3. CORTISONE [Suspect]
     Active Substance: CORTISONE
     Indication: MULTIPLE SCLEROSIS
     Route: 065
  4. KLEXANE [Suspect]
     Active Substance: ENOXAPARIN
     Route: 065
     Dates: start: 202006
  5. TECFIDERA [Suspect]
     Active Substance: DIMETHYL FUMARATE
     Indication: MULTIPLE SCLEROSIS
     Dosage: MAINTENANCE
     Route: 048
  6. TECFIDERA [Suspect]
     Active Substance: DIMETHYL FUMARATE
     Route: 065
     Dates: start: 20200913
  7. SOMAC [Concomitant]
     Active Substance: PANTOPRAZOLE SODIUM
     Indication: DYSPEPSIA
     Route: 065
  8. KLEXANE [Suspect]
     Active Substance: ENOXAPARIN
     Indication: THROMBOSIS
     Route: 065
     Dates: start: 202005

REACTIONS (9)
  - Pneumonia [Unknown]
  - Limb injury [Unknown]
  - Gastrointestinal disorder [Unknown]
  - Dyspepsia [Not Recovered/Not Resolved]
  - Haemorrhage [Unknown]
  - Gastroenteritis viral [Unknown]
  - Diarrhoea [Not Recovered/Not Resolved]
  - Abdominal distension [Unknown]
  - Thrombosis [Not Recovered/Not Resolved]

NARRATIVE: CASE EVENT DATE: 2020
